FAERS Safety Report 15301666 (Version 4)
Quarter: 2019Q3

REPORT INFORMATION
  Report Type: Report from Study
  Country: US (occurrence: US)
  Receive Date: 20180821
  Receipt Date: 20190905
  Transmission Date: 20191004
  Serious: Yes (Hospitalization)
  Sender: FDA-Public Use
  Company Number: US-EISAI MEDICAL RESEARCH-EC-2018-042357

PATIENT
  Age: 60 Year
  Sex: Female
  Weight: 62 kg

DRUGS (17)
  1. LENVIMA [Suspect]
     Active Substance: LENVATINIB
     Dosage: DOSE REDUCED
     Route: 048
     Dates: start: 201906, end: 201907
  2. XGEVA [Concomitant]
     Active Substance: DENOSUMAB
  3. LENVIMA [Suspect]
     Active Substance: LENVATINIB
     Dosage: 2 WEEKS ON AND 1 WEEK OFF (DOSE UNKNOWN)
     Route: 048
     Dates: start: 201907
  4. LOSARTAN POTASSIUM. [Concomitant]
     Active Substance: LOSARTAN POTASSIUM
  5. SUCRALFATE. [Concomitant]
     Active Substance: SUCRALFATE
  6. RANITIDINE. [Concomitant]
     Active Substance: RANITIDINE
  7. FENTANYL. [Concomitant]
     Active Substance: FENTANYL
  8. LENVIMA [Suspect]
     Active Substance: LENVATINIB
     Route: 048
     Dates: start: 2018, end: 2018
  9. AFINITOR [Concomitant]
     Active Substance: EVEROLIMUS
  10. LEVOTHYROXINE SODIUM. [Concomitant]
     Active Substance: LEVOTHYROXINE SODIUM
  11. LENVIMA [Suspect]
     Active Substance: LENVATINIB
     Indication: RENAL CANCER
     Route: 048
     Dates: start: 20180627, end: 201807
  12. LENVIMA [Suspect]
     Active Substance: LENVATINIB
     Route: 048
     Dates: start: 2018, end: 201906
  13. TYLENOL [Concomitant]
     Active Substance: ACETAMINOPHEN
  14. LENVIMA [Suspect]
     Active Substance: LENVATINIB
     Indication: BONE CANCER
     Route: 048
     Dates: start: 201807, end: 201808
  15. OMEPRAZOLE. [Concomitant]
     Active Substance: OMEPRAZOLE
  16. AMLODIPINE [Concomitant]
     Active Substance: AMLODIPINE BESYLATE
  17. SODIUM BICARBONATE. [Concomitant]
     Active Substance: SODIUM BICARBONATE

REACTIONS (29)
  - Diarrhoea [Recovering/Resolving]
  - Hiccups [Not Recovered/Not Resolved]
  - Back pain [Not Recovered/Not Resolved]
  - Thrombosis [Recovering/Resolving]
  - Cough [Not Recovered/Not Resolved]
  - Abdominal pain [Not Recovered/Not Resolved]
  - Urinary incontinence [Unknown]
  - Epistaxis [Not Recovered/Not Resolved]
  - Oral pain [Not Recovered/Not Resolved]
  - Eructation [Unknown]
  - Dyspnoea [Recovering/Resolving]
  - Decreased appetite [Recovering/Resolving]
  - Dizziness [Unknown]
  - Hallucination [Unknown]
  - Pneumonia [Not Recovered/Not Resolved]
  - Musculoskeletal chest pain [Not Recovered/Not Resolved]
  - Rash erythematous [Unknown]
  - Neutrophil count abnormal [Unknown]
  - Dehydration [Not Recovered/Not Resolved]
  - Stomatitis [Not Recovered/Not Resolved]
  - Dry mouth [Unknown]
  - Aphonia [Not Recovered/Not Resolved]
  - Blood pressure increased [Not Recovered/Not Resolved]
  - Fatigue [Recovering/Resolving]
  - Myalgia [Not Recovered/Not Resolved]
  - Somnolence [Unknown]
  - Thoracic vertebral fracture [Unknown]
  - Thyroid function test abnormal [Unknown]
  - Weight decreased [Unknown]

NARRATIVE: CASE EVENT DATE: 2018
